FAERS Safety Report 6581885-X (Version None)
Quarter: 2010Q1

REPORT INFORMATION
  Report Type: 
  Country: None (occurrence: None)
  Receive Date: 20100212
  Receipt Date: 20100212
  Transmission Date: 20100710
  Serious: Yes (Hospitalization)
  Sender: FDA-Public Use
  Company Number: None

PATIENT
  Age: 66 Year
  Sex: Male
  Weight: 118.43 kg

DRUGS (2)
  1. ETODOLAC [Suspect]
     Indication: HYPERTENSION
     Dosage: 400 MG BID PO
     Route: 048
     Dates: start: 20090902, end: 20090910
  2. LISINOPRIL [Suspect]
     Indication: PAIN
     Dosage: 10 MG EVERY DAY PO
     Route: 048
     Dates: start: 20090429, end: 20090910

REACTIONS (1)
  - ANGIOEDEMA [None]
